FAERS Safety Report 7690344-2 (Version None)
Quarter: 2011Q3

REPORT INFORMATION
  Report Type: 
  Country: None (occurrence: None)
  Receive Date: 20110818
  Receipt Date: 20110812
  Transmission Date: 20111222
  Serious: Yes (Death)
  Sender: FDA-Public Use
  Company Number: JP-SHIRE-SPV1-2011-00042

PATIENT
  Age: 67 Year
  Sex: Female

DRUGS (10)
  1. PLAVIX [Concomitant]
     Indication: ANGINA PECTORIS
     Dosage: 50 MG, UNKNOWN
     Route: 048
     Dates: start: 20100403, end: 20101222
  2. RIBOFLAVIN TAB [Concomitant]
     Indication: GASTRITIS
     Dosage: 20 MG, UNKNOWN
     Route: 048
     Dates: start: 20081118, end: 20101222
  3. URSO                               /00465701/ [Concomitant]
     Indication: CHOLELITHIASIS
     Dosage: 300 MG, UNKNOWN
     Route: 048
     Dates: start: 20030529, end: 20101222
  4. FOSRENOL [Suspect]
     Indication: HYPERPHOSPHATAEMIA
     Dosage: 1500 MG, 1X/DAY:QD
     Route: 048
     Dates: start: 20101005, end: 20101222
  5. ALFAROL [Concomitant]
     Indication: HYPERPARATHYROIDISM SECONDARY
     Dosage: 0.25 MG, UNKNOWN
     Route: 048
     Dates: start: 20081118, end: 20101222
  6. LEVOTHYROXINE SODIUM [Concomitant]
     Indication: HYPERTHYROIDISM
     Dosage: 175 G, UNKNOWN
     Route: 048
     Dates: start: 20090714, end: 20101222
  7. CINACALCET HYDROCHLORIDE [Concomitant]
     Indication: ANGINA PECTORIS
     Dosage: 75 MG, UNKNOWN
     Route: 048
     Dates: start: 20080708, end: 20101222
  8. PREDNISOLONE [Concomitant]
     Indication: RHEUMATOID ARTHRITIS
     Dosage: 10 MG, UNKNOWN
     Route: 048
     Dates: start: 20090709, end: 20101222
  9. PROTECADIN [Concomitant]
     Indication: GASTRITIS
     Dosage: 10 MG, UNKNOWN
     Route: 048
     Dates: start: 20081118, end: 20101222
  10. FOSRENOL [Suspect]
     Dosage: 750 MG, 1X/DAY:QD
     Route: 048
     Dates: start: 20100722, end: 20111004

REACTIONS (4)
  - LARGE INTESTINE PERFORATION [None]
  - INFECTIOUS PERITONITIS [None]
  - SEPSIS [None]
  - GASTROINTESTINAL PERFORATION [None]
